FAERS Safety Report 5067934-9 (Version None)
Quarter: 2006Q3

REPORT INFORMATION
  Report Type: 
  Country: None (occurrence: None)
  Receive Date: 20060802
  Receipt Date: 20060722
  Transmission Date: 20061208
  Serious: Yes (Other)
  Sender: FDA-Public Use
  Company Number: FR-AVENTIS-200612627FR

PATIENT

DRUGS (1)
  1. KETEK [Suspect]
     Route: 048

REACTIONS (1)
  - HEPATITIS [None]
